FAERS Safety Report 8879608 (Version 1)
Quarter: 2012Q4

REPORT INFORMATION
  Report Type: 
  Country: CN (occurrence: CN)
  Receive Date: 20121101
  Receipt Date: 20121101
  Transmission Date: 20130627
  Serious: Yes (Other)
  Sender: FDA-Public Use
  Company Number: CN-JNJFOC-20121015315

PATIENT

DRUGS (4)
  1. SPORANOX [Suspect]
     Indication: FUNGAL INFECTION
     Dosage: for the first two days
     Route: 042
  2. SPORANOX [Suspect]
     Indication: FUNGAL INFECTION
     Dosage: If the efficacy was not satisfactory, would be applied for another 2 weeks
     Route: 042
  3. ITRACONAZOLE [Suspect]
     Indication: FUNGAL INFECTION
     Dosage: 2 week course, if the efficacy was not satisfactory 1-3 months as a whole course of treatment
     Route: 048
  4. CHEMOTHERAPY [Suspect]
     Indication: ACUTE LEUKAEMIA
     Route: 065

REACTIONS (2)
  - Cardiac failure [Recovered/Resolved]
  - Blood bilirubin increased [Recovered/Resolved]
